FAERS Safety Report 7380409-7 (Version None)
Quarter: 2011Q1

REPORT INFORMATION
  Report Type: 
  Country: None (occurrence: None)
  Receive Date: 20110329
  Receipt Date: 20110317
  Transmission Date: 20110831
  Serious: Yes (Other)
  Sender: FDA-Public Use
  Company Number: US-JNJFOC-20110304533

PATIENT
  Sex: Male
  Weight: 88.45 kg

DRUGS (2)
  1. ROGAINE EXTRA STRENGTH (FOR MEN) [Suspect]
     Route: 061
  2. ROGAINE EXTRA STRENGTH (FOR MEN) [Suspect]
     Indication: ALOPECIA
     Route: 061

REACTIONS (6)
  - VISION BLURRED [None]
  - CONFUSIONAL STATE [None]
  - IRRITABILITY [None]
  - WEIGHT INCREASED [None]
  - HEADACHE [None]
  - DIZZINESS [None]
